FAERS Safety Report 24437719 (Version 2)
Quarter: 2024Q4

REPORT INFORMATION
  Report Type: Report from Study
  Country: IN (occurrence: IN)
  Receive Date: 20241015
  Receipt Date: 20241127
  Transmission Date: 20250115
  Serious: Yes (Other)
  Sender: ROCHE
  Company Number: IN-ROCHE-10000100945

PATIENT
  Age: 46 Year
  Sex: Male

DRUGS (1)
  1. AVASTIN [Suspect]
     Active Substance: BEVACIZUMAB
     Indication: Colon cancer
     Dosage: N/A
     Route: 042
     Dates: start: 20240726

REACTIONS (1)
  - Haemorrhoid operation [Unknown]

NARRATIVE: CASE EVENT DATE: 20240926
